FAERS Safety Report 5219204-3 (Version None)
Quarter: 2007Q1

REPORT INFORMATION
  Report Type: 
  Country: None (occurrence: None)
  Receive Date: 20070125
  Receipt Date: 20070123
  Transmission Date: 20070707
  Serious: Yes (Hospitalization, Other)
  Sender: FDA-Public Use
  Company Number: CA-MERCK-0611CAN00141

PATIENT
  Age: 43 Year
  Sex: Male

DRUGS (7)
  1. COZAAR [Suspect]
     Indication: HYPERTENSION
     Route: 048
     Dates: start: 20051223, end: 20060118
  2. COZAAR [Suspect]
     Route: 048
     Dates: start: 20060119, end: 20060315
  3. COZAAR [Suspect]
     Route: 048
     Dates: start: 20060316, end: 20061218
  4. ALLOPURINOL [Concomitant]
     Indication: GOUT
     Route: 065
     Dates: start: 19971020
  5. HYZAAR [Concomitant]
     Indication: HYPERTENSION
     Route: 048
     Dates: start: 20060316, end: 20061218
  6. HYZAAR [Concomitant]
     Route: 048
     Dates: start: 20061219
  7. MOTRIN [Concomitant]
     Route: 065

REACTIONS (2)
  - ACUTE CORONARY SYNDROME [None]
  - PHARYNGITIS [None]
